FAERS Safety Report 7763477-X (Version None)
Quarter: 2011Q3

REPORT INFORMATION
  Report Type: 
  Country: None (occurrence: None)
  Receive Date: 20110920
  Receipt Date: 20110912
  Transmission Date: 20111222
  Serious: Yes (Death)
  Sender: FDA-Public Use
  Company Number: US-MYLANLABS-2010S1002381

PATIENT
  Age: 47 Year
  Sex: Male
  Weight: 63.5 kg

DRUGS (10)
  1. METFORMIN HCL [Concomitant]
  2. AVAPRO [Concomitant]
  3. DURAGESIC-100 [Suspect]
     Indication: PAIN
     Route: 062
     Dates: start: 20080201, end: 20080213
  4. FISH OIL [Concomitant]
  5. ASCORBIC ACID [Concomitant]
  6. GLUCOSAMINE [Concomitant]
  7. FENTANYL-100 [Suspect]
     Indication: PAIN
     Route: 062
  8. ALPRAZOLAM [Concomitant]
  9. OXYCODONE/ACETAMINOPHEN [Concomitant]
  10. AMLODIPINE [Concomitant]

REACTIONS (1)
  - TOXICITY TO VARIOUS AGENTS [None]
